FAERS Safety Report 6140562-X (Version None)
Quarter: 2009Q2

REPORT INFORMATION
  Report Type: 
  Country: None (occurrence: None)
  Receive Date: 20090402
  Receipt Date: 20090324
  Transmission Date: 20091009
  Serious: Yes (Hospitalization)
  Sender: FDA-Public Use
  Company Number: PHEH2009US01390

PATIENT
  Sex: Female
  Weight: 80 kg

DRUGS (6)
  1. METHERGINE [Suspect]
     Indication: UTERINE ATONY
     Dosage: UNK, UNK
     Route: 030
     Dates: start: 20081216, end: 20081216
  2. METHERGINE [Suspect]
     Indication: POSTPARTUM HAEMORRHAGE
  3. PITOCIN                                 /AUT/ [Suspect]
     Indication: OPERATIVE HAEMORRHAGE
     Dosage: UNK, UNK
     Dates: start: 20081216
  4. HEMABATE [Suspect]
     Indication: OPERATIVE HAEMORRHAGE
     Dosage: UNK, UNK
     Dates: start: 20081216
  5. VITAMIN TAB [Concomitant]
     Indication: PREGNANCY
     Dosage: 1 TABLET, UNJK
     Route: 048
     Dates: start: 20080513
  6. PEPCID [Concomitant]
     Dosage: 20 MG, PRN
     Route: 048
     Dates: start: 20081114, end: 20081216

REACTIONS (3)
  - HYSTERECTOMY [None]
  - OPERATIVE HAEMORRHAGE [None]
  - UTERINE ATONY [None]
